FAERS Safety Report 9382769 (Version 3)
Quarter: 2013Q4

REPORT INFORMATION
  Report Type: Spontaneous
  Country: US (occurrence: US)
  Receive Date: 20130703
  Receipt Date: 20131015
  Transmission Date: 20140711
  Serious: Yes (Other)
  Sender: FDA-Public Use
  Company Number: US-UCBSA-090357

PATIENT
  Age: 36 Year
  Sex: Female
  Weight: 132 kg

DRUGS (14)
  1. KEPPRA [Suspect]
     Indication: CONVULSION
     Route: 048
     Dates: start: 2006
  2. ATIVAN [Concomitant]
     Indication: ANXIETY
     Dosage: 1 MG EVERY 6 HRS
  3. COMPAZINE [Concomitant]
     Indication: NAUSEA
     Dosage: 10 MG EVERY 6 HRS
  4. CYMBALTA [Concomitant]
     Indication: FIBROMYALGIA
  5. CYMBALTA [Concomitant]
     Indication: DEPRESSION
  6. DIFLUCAN [Concomitant]
     Indication: ANTIFUNGAL TREATMENT
  7. SINGULAIR [Concomitant]
     Indication: HYPERSENSITIVITY
     Dosage: AT BEDTIME
  8. PROTONIX [Concomitant]
     Indication: ANTACID THERAPY
  9. TRAZODONE [Concomitant]
     Indication: DEPRESSION
     Dosage: AT BEDTIME
  10. TRAZODONE [Concomitant]
     Indication: SLEEP DISORDER
     Dosage: AT BEDTIME
  11. TOPAMAX [Concomitant]
     Indication: CONVULSION
  12. DILAUDID [Concomitant]
     Indication: PAIN
     Route: 042
  13. DILAUDID [Concomitant]
     Indication: HEADACHE
     Route: 042
  14. ZOFRAN [Concomitant]
     Indication: NAUSEA
     Dosage: 4 MG EVERY 4 HRS
     Route: 042

REACTIONS (1)
  - Glioblastoma [Not Recovered/Not Resolved]
